FAERS Safety Report 12781826 (Version 2)
Quarter: 2016Q4

REPORT INFORMATION
  Report Type: Spontaneous
  Country: US (occurrence: US)
  Receive Date: 20160926
  Receipt Date: 20161031
  Transmission Date: 20170207
  Serious: Yes (Hospitalization)
  Sender: FDA-Public Use
  Company Number: US-BIOMARINAP-US-2016-111220

PATIENT
  Age: 27 Year
  Sex: Female

DRUGS (3)
  1. ALDURAZYME [Suspect]
     Active Substance: LARONIDASE
     Dosage: 49.3 MG, QW
     Route: 041
     Dates: start: 201510, end: 2016
  2. ALDURAZYME [Suspect]
     Active Substance: LARONIDASE
     Indication: MUCOPOLYSACCHARIDOSIS I
     Dosage: 49.3 MG, QW
     Route: 041
     Dates: start: 2002
  3. ALDURAZYME [Suspect]
     Active Substance: LARONIDASE
     Dosage: 49.3 MG, QW
     Route: 041
     Dates: start: 2016

REACTIONS (2)
  - Malaise [Unknown]
  - Kidney infection [Unknown]

NARRATIVE: CASE EVENT DATE: 201610
